FAERS Safety Report 13027044 (Version 1)
Quarter: 2016Q4

REPORT INFORMATION
  Report Type: Spontaneous
  Country: HR (occurrence: HR)
  Receive Date: 20161214
  Receipt Date: 20161214
  Transmission Date: 20170207
  Serious: No
  Sender: FDA-Public Use
  Company Number: HR-JNJFOC-20161201712

PATIENT
  Age: 36 Year
  Sex: Male

DRUGS (1)
  1. STELARA [Suspect]
     Active Substance: USTEKINUMAB
     Indication: PSORIASIS
     Route: 058
     Dates: start: 20140401

REACTIONS (6)
  - Hyperlipidaemia [Unknown]
  - Psoriasis [Unknown]
  - Mycobacterium tuberculosis complex test positive [Unknown]
  - Hepatic steatosis [Unknown]
  - Chest X-ray abnormal [Unknown]
  - Glucose tolerance impaired [Unknown]

NARRATIVE: CASE EVENT DATE: 20160713
